FAERS Safety Report 8137881-4 (Version None)
Quarter: 2012Q1

REPORT INFORMATION
  Report Type: 
  Country: None (occurrence: None)
  Receive Date: 20120215
  Receipt Date: 20120208
  Transmission Date: 20120608
  Serious: Yes (Other)
  Sender: FDA-Public Use
  Company Number: US-BAYER-2011-102807

PATIENT
  Age: 32 Year
  Sex: Female
  Weight: 102.4 kg

DRUGS (11)
  1. FLEXERIL [Concomitant]
     Indication: HEADACHE
     Dosage: UNK
     Dates: start: 20060101
  2. VALIUM [Concomitant]
     Indication: POLLAKIURIA
  3. METFORMIN HCL [Concomitant]
     Indication: POLYCYSTIC OVARIES
     Dosage: UNK MG, UNK
     Dates: start: 20080101
  4. YASMIN [Suspect]
     Indication: POLYCYSTIC OVARIES
     Dosage: UNK
     Dates: start: 20080101, end: 20090101
  5. MOTRIN [Concomitant]
  6. YAZ [Suspect]
     Indication: POLYCYSTIC OVARIES
     Dosage: UNK
     Dates: start: 20000201, end: 20090101
  7. SPIRONOLACTONE [Concomitant]
     Dosage: UNK
     Dates: start: 20070101, end: 20090101
  8. OXYBUTYNIN [Concomitant]
     Indication: POLLAKIURIA
  9. IBUPROFEN (ADVIL) [Concomitant]
  10. METFORMIN HCL [Concomitant]
     Dosage: 500 MG, UNK
     Dates: start: 20090604, end: 20101123
  11. VALIUM [Concomitant]
     Indication: STRESS
     Dosage: UNK
     Dates: start: 20060101

REACTIONS (3)
  - PAIN [None]
  - INJURY [None]
  - DEEP VEIN THROMBOSIS [None]
